FAERS Safety Report 9734439 (Version 1)
Quarter: 2013Q4

REPORT INFORMATION
  Report Type: Spontaneous
  Country: US (occurrence: US)
  Receive Date: 20131206
  Receipt Date: 20131206
  Transmission Date: 20140711
  Serious: Yes (Other)
  Sender: FDA-Public Use
  Company Number: US-BEH-2013039279

PATIENT
  Sex: Male

DRUGS (1)
  1. ZEMAIRA [Suspect]

REACTIONS (3)
  - Spinal fracture [Unknown]
  - Cough [Unknown]
  - Depression [Unknown]
